FAERS Safety Report 20079471 (Version 11)
Quarter: 2022Q3

REPORT INFORMATION
  Report Type: Report from Study
  Country: CA (occurrence: CA)
  Receive Date: 20211117
  Receipt Date: 20220923
  Transmission Date: 20221027
  Serious: Yes (Other)
  Sender: FDA-Public Use
  Company Number: CA-NOVARTISPH-NVSC2020CA157247

PATIENT
  Age: 53 Year
  Sex: Male
  Weight: 83.3 kg

DRUGS (10)
  1. COSENTYX [Suspect]
     Active Substance: SECUKINUMAB
     Indication: Psoriasis
     Dosage: 300 MG, UNKNOWN
     Route: 058
     Dates: start: 20200206
  2. COSENTYX [Suspect]
     Active Substance: SECUKINUMAB
     Dosage: 300 MG, QMO
     Route: 058
     Dates: start: 20200226, end: 20200305
  3. COSENTYX [Suspect]
     Active Substance: SECUKINUMAB
     Dosage: 300 MG, UNKNOWN
     Route: 058
     Dates: start: 20200427, end: 20210805
  4. COSENTYX [Suspect]
     Active Substance: SECUKINUMAB
     Dosage: 300 MG, UNKNOWN
     Route: 058
     Dates: end: 20210810
  5. COSENTYX [Suspect]
     Active Substance: SECUKINUMAB
     Dosage: 300 MG, UNKNOWN
     Route: 058
     Dates: start: 20220111, end: 20220208
  6. COSENTYX [Suspect]
     Active Substance: SECUKINUMAB
     Dosage: 300 MG, QMO
     Route: 058
     Dates: start: 20220308, end: 20220508
  7. HYDROCORTISONE VALERATE [Concomitant]
     Active Substance: HYDROCORTISONE VALERATE
     Indication: Drug-induced liver injury
     Dosage: UNK
     Route: 065
     Dates: start: 20211014
  8. DIPROSONE [Concomitant]
     Active Substance: BETAMETHASONE DIPROPIONATE
     Indication: Dyslipidaemia
     Dosage: UNK
     Route: 065
     Dates: start: 20211014
  9. BENDAMUSTINE [Concomitant]
     Active Substance: BENDAMUSTINE
     Indication: Chemotherapy
     Dosage: UNK
     Route: 065
     Dates: start: 20220601
  10. RITUXIMAB [Concomitant]
     Active Substance: RITUXIMAB
     Indication: Chemotherapy
     Dosage: UNK
     Route: 065
     Dates: start: 20220601

REACTIONS (11)
  - Hypothyroidism [Not Recovered/Not Resolved]
  - Non-Hodgkin^s lymphoma stage II [Not Recovered/Not Resolved]
  - Renal failure [Recovering/Resolving]
  - Ureteric obstruction [Not Recovered/Not Resolved]
  - Hydronephrosis [Not Recovered/Not Resolved]
  - Inferior vena caval occlusion [Not Recovered/Not Resolved]
  - Psoriasis [Unknown]
  - Back pain [Recovering/Resolving]
  - Oedema peripheral [Not Recovered/Not Resolved]
  - Adjustment disorder with mixed anxiety and depressed mood [Recovering/Resolving]
  - Insomnia [Recovering/Resolving]

NARRATIVE: CASE EVENT DATE: 20200506
